FAERS Safety Report 13488600 (Version 1)
Quarter: 2017Q2

REPORT INFORMATION
  Report Type: Spontaneous
  Country: US (occurrence: US)
  Receive Date: 20170426
  Receipt Date: 20170426
  Transmission Date: 20170830
  Serious: Yes (Hospitalization)
  Sender: FDA-Public Use
  Company Number: None

PATIENT
  Age: 18 Year
  Sex: Male

DRUGS (1)
  1. MYORISAN [Suspect]
     Active Substance: ISOTRETINOIN
     Route: 048
     Dates: start: 20170130

REACTIONS (5)
  - Flatulence [None]
  - Abdominal pain [None]
  - Gallbladder disorder [None]
  - Musculoskeletal disorder [None]
  - Lipase increased [None]

NARRATIVE: CASE EVENT DATE: 20170413
